FAERS Safety Report 18813084 (Version 1)
Quarter: 2021Q1

REPORT INFORMATION
  Report Type: Spontaneous
  Country: US (occurrence: US)
  Receive Date: 20210131
  Receipt Date: 20210131
  Transmission Date: 20210419
  Serious: No
  Sender: FDA-Public Use
  Company Number: US-ELI_LILLY_AND_COMPANY-US202101010966

PATIENT
  Sex: Male

DRUGS (3)
  1. METFORMIN [Concomitant]
     Active Substance: METFORMIN HYDROCHLORIDE
     Indication: DIABETES MELLITUS
     Dosage: 1000 MG, BID
     Route: 065
     Dates: start: 2015
  2. HUMALOG [Suspect]
     Active Substance: INSULIN LISPRO
     Indication: TYPE 2 DIABETES MELLITUS
     Dosage: 1?3 U, PRN (SLIDING SCALE) WITH MEALS
     Route: 058
     Dates: start: 2020
  3. LANTUS [Concomitant]
     Active Substance: INSULIN GLARGINE
     Indication: DIABETES MELLITUS
     Dosage: 15 U, DAILY (NIGHT)
     Route: 065
     Dates: start: 2015

REACTIONS (2)
  - Blood glucose increased [Unknown]
  - Stress [Unknown]
